FAERS Safety Report 5298394-0 (Version None)
Quarter: 2007Q2

REPORT INFORMATION
  Report Type: 
  Country: None (occurrence: None)
  Receive Date: 20070409
  Receipt Date: 20070326
  Transmission Date: 20071010
  Serious: Yes (Life-Threatening, Hospitalization)
  Sender: FDA-Public Use
  Company Number: 6031507

PATIENT
  Age: 41 Year
  Sex: Female

DRUGS (2)
  1. AMITRIPTYLINE HCL [Suspect]
     Indication: DRUG USE FOR UNKNOWN INDICATION
  2. DICLOFENAC (DICLOFENAC) [Suspect]
     Indication: DRUG USE FOR UNKNOWN INDICATION

REACTIONS (16)
  - BLOOD CREATININE INCREASED [None]
  - HEPATIC ENZYME INCREASED [None]
  - HYPOTHERMIA [None]
  - METABOLIC ACIDOSIS [None]
  - MULTIPLE DRUG OVERDOSE INTENTIONAL [None]
  - MYDRIASIS [None]
  - PNEUMONIA [None]
  - PULSE ABSENT [None]
  - PUPILLARY REFLEX IMPAIRED [None]
  - RESPIRATORY ACIDOSIS [None]
  - SHOCK [None]
  - SUICIDE ATTEMPT [None]
  - THERAPEUTIC AGENT TOXICITY [None]
  - VENTRICULAR ARRHYTHMIA [None]
  - VENTRICULAR FIBRILLATION [None]
  - VENTRICULAR TACHYCARDIA [None]
